FAERS Safety Report 7293930-7 (Version None)
Quarter: 2011Q1

REPORT INFORMATION
  Report Type: 
  Country: None (occurrence: None)
  Receive Date: 20110203
  Receipt Date: 20110118
  Transmission Date: 20110831
  Serious: Yes (Hospitalization)
  Sender: FDA-Public Use
  Company Number: 020097

PATIENT
  Sex: Female

DRUGS (5)
  1. CIMZIA [Suspect]
     Indication: ANKYLOSING SPONDYLITIS
     Dosage: 200 MG 1X2 WEEKS SUBCUTANEOUS
     Route: 058
     Dates: start: 20100706, end: 20100819
  2. VENOFER [Concomitant]
  3. LEDERSPAN [Concomitant]
  4. LEVOTHYROXINE SODIUM [Concomitant]
  5. PARACET [Suspect]

REACTIONS (11)
  - NASAL MUCOSAL DISORDER [None]
  - WOUND HAEMORRHAGE [None]
  - PHARYNGEAL DISORDER [None]
  - RED BLOOD CELL SEDIMENTATION RATE DECREASED [None]
  - ORAL DISORDER [None]
  - GASTROINTESTINAL MUCOSAL DISORDER [None]
  - C-REACTIVE PROTEIN INCREASED [None]
  - OFF LABEL USE [None]
  - VAGINAL DISORDER [None]
  - GENERAL PHYSICAL HEALTH DETERIORATION [None]
  - WOUND COMPLICATION [None]
